FAERS Safety Report 9787584 (Version 6)
Quarter: 2014Q2

REPORT INFORMATION
  Report Type: Report from Study
  Country: DE (occurrence: DE)
  Receive Date: 20131230
  Receipt Date: 20140516
  Transmission Date: 20141212
  Serious: Yes (Hospitalization)
  Sender: FDA-Public Use
  Company Number: DE-BEH-2013039698

PATIENT
  Age: 77 Year
  Sex: Female
  Weight: 62 kg

DRUGS (15)
  1. PRIVIGEN [Suspect]
     Indication: CHRONIC LYMPHOCYTIC LEUKAEMIA
     Dosage: INFUSION RATE MIN. 0.8 ML/MIN, MAX. 6 ML/MIN
     Route: 042
     Dates: start: 20130805, end: 20130805
  2. PRIVIGEN [Suspect]
     Indication: SECONDARY IMMUNODEFICIENCY
     Dosage: INFUSION RATE MIN. 0.8 ML/MIN, MAX. 6 ML/MIN
     Route: 042
     Dates: start: 20130902, end: 20130902
  3. PRIVIGEN [Suspect]
     Dosage: INFUSION RATE MIN. 0.8 ML/MIN, MAX. 6 ML/MIN
     Route: 042
     Dates: start: 20130930, end: 20130930
  4. PRIVIGEN [Suspect]
     Dosage: INFUSION RATE MIN. 0.8 ML/MIN, MAX. 6 ML/MIN
     Route: 042
     Dates: start: 20131028, end: 20131028
  5. PRIVIGEN [Suspect]
     Dosage: INFUSION RATE MIN. 0.8 ML/MIN, MAX. 6 ML/MIN
     Route: 042
     Dates: start: 20131125, end: 20131125
  6. PREDNISOLUT [Concomitant]
     Indication: PREMEDICATION
     Route: 042
  7. ASS 100 [Concomitant]
     Dosage: 1-0-0
  8. BELOC ZOK MITE [Concomitant]
     Dosage: 1-0-1
  9. SIMVASTATIN [Concomitant]
     Dosage: 0-0-1/2
  10. ALLOPURINOL [Concomitant]
     Dosage: 0-0-1
  11. RAMIPRIL 5/25 COMP. [Concomitant]
     Dosage: 1-0-1
  12. METHIZOL SD [Concomitant]
     Dosage: 1/2-0-0
  13. METFORMIN [Concomitant]
     Dosage: 1-0-1
  14. GLIMEPIRID [Concomitant]
     Dosage: 1-0-0
  15. XELEVIA [Concomitant]

REACTIONS (7)
  - Arterial occlusive disease [Recovered/Resolved]
  - Pneumonia [Recovered/Resolved]
  - Sinusitis [Recovered/Resolved]
  - Otitis media [Recovered/Resolved]
  - Upper respiratory tract infection [Recovered/Resolved]
  - Upper respiratory tract infection [Recovered/Resolved]
  - Upper respiratory tract infection [Recovering/Resolving]
